FAERS Safety Report 9714856 (Version 1)
Quarter: 2013Q4

REPORT INFORMATION
  Report Type: Spontaneous
  Country: US (occurrence: US)
  Receive Date: 20131126
  Receipt Date: 20131126
  Transmission Date: 20140711
  Serious: Yes (Life-Threatening, Hospitalization)
  Sender: FDA-Public Use
  Company Number: US-US-EMD SERONO, INC.-7252559

PATIENT
  Age: 39 Year
  Sex: Female

DRUGS (21)
  1. REBIF [Suspect]
     Indication: MULTIPLE SCLEROSIS RELAPSE
     Dates: start: 20130819
  2. TRAZODONE HYDROCHLORIDE [Suspect]
     Indication: PRODUCT USED FOR UNKNOWN INDICATION
     Dates: start: 20131010
  3. DIPHENHYDRAMINE HYDROCHLORIDE [Concomitant]
     Indication: PRODUCT USED FOR UNKNOWN INDICATION
     Dates: start: 20121011
  4. BENADRYL                           /00000402/ [Concomitant]
     Indication: PRODUCT USED FOR UNKNOWN INDICATION
  5. BENADRYL                           /00000402/ [Concomitant]
     Dates: start: 20130313
  6. BENADRYL                           /00000402/ [Concomitant]
     Dates: start: 20120827
  7. TYLENOL                            /00020001/ [Concomitant]
     Indication: PRODUCT USED FOR UNKNOWN INDICATION
     Dates: start: 20120927
  8. TYLENOL                            /00020001/ [Concomitant]
     Dates: start: 20121011
  9. TYLENOL                            /00020001/ [Concomitant]
     Dates: start: 20130313
  10. TYLENOL                            /00020001/ [Concomitant]
     Dates: start: 20130827
  11. METHYLPREDNISOLONE [Concomitant]
     Indication: PRODUCT USED FOR UNKNOWN INDICATION
     Dates: start: 20120927
  12. METHYLPREDNISOLONE [Concomitant]
     Dates: start: 20121011
  13. METHYLPREDNISOLONE [Concomitant]
     Dates: start: 20130313
  14. METHYLPREDNISOLONE [Concomitant]
     Dates: start: 20130827
  15. SEROQUEL                           /01270901/ [Concomitant]
     Indication: PRODUCT USED FOR UNKNOWN INDICATION
     Dates: start: 20091117
  16. CYMBALTA [Concomitant]
     Indication: PRODUCT USED FOR UNKNOWN INDICATION
     Dates: start: 20100118
  17. DETROL LA [Concomitant]
     Indication: PRODUCT USED FOR UNKNOWN INDICATION
     Dates: start: 20110425
  18. ZOLPIDEM [Concomitant]
     Indication: PRODUCT USED FOR UNKNOWN INDICATION
     Dates: start: 20110517
  19. ZANAFLEX [Concomitant]
     Indication: PRODUCT USED FOR UNKNOWN INDICATION
     Dates: start: 20121030
  20. OMEPRAZOLE [Concomitant]
     Indication: PRODUCT USED FOR UNKNOWN INDICATION
     Dates: start: 20130208
  21. QUETIAPINE FUMARATE [Concomitant]
     Indication: PRODUCT USED FOR UNKNOWN INDICATION
     Dates: start: 20131010

REACTIONS (6)
  - Intentional overdose [Unknown]
  - Fall [Unknown]
  - Confusional state [Unknown]
  - Depressed level of consciousness [Unknown]
  - Opiates positive [Unknown]
  - Amphetamines positive [Unknown]
